FAERS Safety Report 25889495 (Version 3)
Quarter: 2025Q4

REPORT INFORMATION
  Report Type: Report from Study
  Country: CA (occurrence: CA)
  Receive Date: 20251007
  Receipt Date: 20251111
  Transmission Date: 20260118
  Serious: Yes (Other)
  Sender: IPSEN BIOPHARMACEUTICALS, INC.
  Company Number: CA-IPSEN Group, Research and Development-2025-17856

PATIENT
  Age: 76 Year
  Sex: Female

DRUGS (8)
  1. LANREOTIDE ACETATE [Suspect]
     Active Substance: LANREOTIDE ACETATE
     Indication: Gastroenteropancreatic neuroendocrine tumour disease
     Dosage: 120MG Q4 WEEKS DEEP-SC
     Route: 058
     Dates: start: 20250515
  2. LANREOTIDE ACETATE [Suspect]
     Active Substance: LANREOTIDE ACETATE
     Dosage: DECREASED TO 90MG Q4 WEEKS?IM
     Route: 030
  3. LANREOTIDE ACETATE [Suspect]
     Active Substance: LANREOTIDE ACETATE
     Dosage: DEEP SUBCUTANEOUS
     Route: 058
  4. Ripaglinide [Concomitant]
     Dosage: 4 CO AM AND 3 CO AT 12PM
  5. VITAMIN D NOS [Concomitant]
     Active Substance: CHOLECALCIFEROL\ERGOCALCIFEROL
     Dosage: 300 MG 1 CO DIE
  6. DEXLANSOPRAZOLE [Concomitant]
     Active Substance: DEXLANSOPRAZOLE
     Dosage: DEXLANSOPRAZOLE 60 MG 1 CO
  7. Sulfate ferrous [Concomitant]
     Dosage: SULFATE FERROUS 300 MG 1 CO DIE
  8. VITAMIN B [Concomitant]
     Active Substance: VITAMIN B
     Dosage: VIT B 12 000 MG

REACTIONS (2)
  - Diabetes mellitus inadequate control [Not Recovered/Not Resolved]
  - Incorrect route of product administration [Unknown]

NARRATIVE: CASE EVENT DATE: 20250101
